FAERS Safety Report 9890509 (Version 1)
Quarter: 2014Q1

REPORT INFORMATION
  Report Type: Spontaneous
  Country: US (occurrence: None)
  Receive Date: 20140211
  Receipt Date: 20140211
  Transmission Date: 20141002
  Serious: Yes (Hospitalization)
  Sender: FDA-Public Use
  Company Number: None

PATIENT
  Age: 78 Year
  Sex: Male
  Weight: 79 kg

DRUGS (18)
  1. WARFARIN [Suspect]
     Indication: ISCHAEMIC CARDIOMYOPATHY
     Route: 048
     Dates: end: 20110930
  2. AMIODARONE [Concomitant]
  3. ASCORBIC ACID [Concomitant]
  4. CARVEDILOL [Concomitant]
  5. CHOLESTYRAMINE [Concomitant]
  6. DIGOXIN [Concomitant]
  7. DOXAZOSIN [Concomitant]
  8. ENALAPRIL [Concomitant]
  9. EZETIMIBE [Concomitant]
  10. FUROSEMIDE [Concomitant]
  11. HYDROXYZINE [Concomitant]
  12. NIACIN [Concomitant]
  13. POTASSIUM CHLORIDE [Concomitant]
  14. TRIAMCINOLONE [Concomitant]
  15. CEFTRIAXONE [Concomitant]
  16. AZITHROMYCIN [Concomitant]
  17. ONDANSETRON [Concomitant]
  18. CODEINE-GUAIFENESIN [Concomitant]

REACTIONS (6)
  - Pneumonia [None]
  - Diarrhoea [None]
  - Melaena [None]
  - International normalised ratio increased [None]
  - Thrombosis [None]
  - Haemoglobin decreased [None]
